FAERS Safety Report 9055102 (Version 1)
Quarter: 2013Q1

REPORT INFORMATION
  Report Type: Report from Study
  Country: JP (occurrence: JP)
  Receive Date: 20130206
  Receipt Date: 20130206
  Transmission Date: 20140127
  Serious: Yes (Other)
  Sender: FDA-Public Use
  Company Number: PHHY2011JP103476

PATIENT
  Age: 31 None
  Sex: Female
  Weight: 52 kg

DRUGS (48)
  1. LEPONEX / CLOZARIL [Suspect]
     Indication: SCHIZOPHRENIA, PARANOID TYPE
     Dosage: 12.5 MG
     Route: 048
     Dates: start: 20110420, end: 20110420
  2. LEPONEX / CLOZARIL [Suspect]
     Dosage: 25 MG
     Route: 048
     Dates: start: 20110421, end: 20110423
  3. LEPONEX / CLOZARIL [Suspect]
     Dosage: 50 MG
     Route: 048
     Dates: start: 20110424, end: 20110426
  4. LEPONEX / CLOZARIL [Suspect]
     Dosage: 75 MG
     Route: 048
     Dates: start: 20110427, end: 20110502
  5. LEPONEX / CLOZARIL [Suspect]
     Dosage: 100 MG
     Route: 048
     Dates: start: 20110503, end: 20110506
  6. LEPONEX / CLOZARIL [Suspect]
     Dosage: 125 MG
     Route: 048
     Dates: start: 20110507, end: 20110508
  7. LEPONEX / CLOZARIL [Suspect]
     Dosage: 150 MG
     Route: 048
     Dates: start: 20110509, end: 20110510
  8. LEPONEX / CLOZARIL [Suspect]
     Dosage: 175 MG
     Route: 048
     Dates: start: 20110511, end: 20110517
  9. LEPONEX / CLOZARIL [Suspect]
     Dosage: 200 MG
     Route: 048
     Dates: start: 20110518, end: 20110524
  10. LEPONEX / CLOZARIL [Suspect]
     Dosage: 225 MG
     Route: 048
     Dates: start: 20110525, end: 20110531
  11. LEPONEX / CLOZARIL [Suspect]
     Dosage: 250 MG
     Route: 048
     Dates: start: 20110601, end: 20110607
  12. LEPONEX / CLOZARIL [Suspect]
     Dosage: 300 MG
     Route: 048
     Dates: start: 20110608, end: 20110614
  13. LEPONEX / CLOZARIL [Suspect]
     Dosage: 350 MG
     Route: 048
     Dates: start: 20110615, end: 20110621
  14. LEPONEX / CLOZARIL [Suspect]
     Dosage: 400 MG
     Route: 048
     Dates: start: 20110622, end: 20110705
  15. LEPONEX / CLOZARIL [Suspect]
     Dosage: 450 MG
     Route: 048
     Dates: start: 20110706, end: 20110712
  16. LEPONEX / CLOZARIL [Suspect]
     Dosage: 500 MG
     Route: 048
     Dates: start: 20110713, end: 20110720
  17. LEPONEX / CLOZARIL [Suspect]
     Dosage: 400 MG
     Route: 048
     Dates: start: 20110721
  18. LEPONEX / CLOZARIL [Suspect]
     Dosage: 475 MG
     Route: 048
     Dates: start: 20111020, end: 20111114
  19. LEPONEX / CLOZARIL [Suspect]
     Dosage: 500 MG
     Route: 048
     Dates: start: 20111115, end: 20111128
  20. LEPONEX / CLOZARIL [Suspect]
     Dosage: 400 MG
     Route: 048
     Dates: start: 20111129, end: 20111205
  21. LEPONEX / CLOZARIL [Suspect]
     Dosage: 425 MG
     Route: 048
     Dates: start: 20111206, end: 20111220
  22. LEPONEX / CLOZARIL [Suspect]
     Dosage: 450 MG
     Route: 048
     Dates: start: 20111221, end: 20111226
  23. LEPONEX / CLOZARIL [Suspect]
     Dosage: 475 MG
     Route: 048
     Dates: start: 20111227, end: 20120109
  24. LEPONEX / CLOZARIL [Suspect]
     Dosage: 525 MG
     Route: 048
     Dates: start: 20120110, end: 20120130
  25. LEPONEX / CLOZARIL [Suspect]
     Dosage: 550 MG
     Route: 048
     Dates: start: 20120201, end: 20120208
  26. LEPONEX / CLOZARIL [Suspect]
     Dosage: 400 MG
     Route: 048
     Dates: start: 20120223
  27. WYPAX [Suspect]
     Indication: SCHIZOPHRENIA, PARANOID TYPE
     Dosage: 3 MG
     Route: 048
     Dates: start: 20110615, end: 20110719
  28. WYPAX [Suspect]
     Dosage: 3 MG
     Route: 048
     Dates: start: 20111021, end: 20120419
  29. RIVOTRIL [Concomitant]
     Dosage: 2 MG, UNK
  30. TOPIRAMATE [Concomitant]
  31. PURSENNIDE [Concomitant]
     Indication: CONSTIPATION
     Dosage: 24 MG, UNK
     Route: 048
     Dates: start: 20110420
  32. FLUFENAZIN [Concomitant]
     Dosage: 9 MG, UNK
     Route: 048
     Dates: start: 20110420
  33. FLUFENAZIN [Concomitant]
     Dosage: 6 MG, UNK
     Route: 048
  34. FLUFENAZIN [Concomitant]
     Dosage: 3 MG, UNK
     Route: 048
     Dates: end: 20110425
  35. QUETIAPINE FUMARATE [Concomitant]
     Dosage: 400 MG, UNK
     Route: 048
     Dates: start: 20110420
  36. QUETIAPINE FUMARATE [Concomitant]
     Dosage: 200 MG, UNK
     Route: 048
     Dates: end: 20110502
  37. LIMAS [Concomitant]
     Indication: SCHIZOPHRENIA, PARANOID TYPE
     Dosage: 1200 MG, UNK
     Route: 048
     Dates: start: 20110420
  38. BENZALIN [Concomitant]
     Indication: SCHIZOPHRENIA, PARANOID TYPE
     Dosage: 20 MG, UNK
     Route: 048
     Dates: start: 20110420
  39. BENZALIN [Concomitant]
     Dosage: 10 MG, UNK
     Route: 048
     Dates: end: 20110510
  40. LENDORMIN [Concomitant]
     Indication: SCHIZOPHRENIA, PARANOID TYPE
     Dosage: 0.25 MG, UNK
     Route: 048
     Dates: start: 20110420, end: 20110712
  41. BICAMOL [Concomitant]
     Indication: SCHIZOPHRENIA, PARANOID TYPE
     Dosage: 6 MG, UNK
     Route: 048
     Dates: start: 20110420
  42. ALLEGRA [Concomitant]
     Dosage: 120 MG, UNK
     Route: 048
     Dates: start: 20110420, end: 20110426
  43. BIO-THREE [Concomitant]
     Indication: CONSTIPATION
     Dosage: 3 DF, UNK
     Route: 048
     Dates: start: 20110420
  44. MAGLAX [Concomitant]
     Indication: CONSTIPATION
     Dosage: 990 MG, UNK
     Route: 048
     Dates: start: 20110420
  45. SELBEX [Concomitant]
     Indication: ABDOMINAL DISCOMFORT
     Dosage: 150 MG, UNK
     Route: 048
     Dates: start: 20110420, end: 20110524
  46. UBRETID [Concomitant]
     Indication: SCHIZOPHRENIA, PARANOID TYPE
     Dosage: 10 MG, UNK
     Route: 048
     Dates: start: 20110427, end: 20110510
  47. LAXOBERON [Concomitant]
     Indication: CONSTIPATION
     Dosage: 10 GTT, UNK
     Route: 048
     Dates: start: 20110420
  48. DEPAKENE-R [Concomitant]
     Indication: SCHIZOPHRENIA, PARANOID TYPE
     Dosage: 800 MG
     Route: 048
     Dates: start: 20120307, end: 20120419

REACTIONS (12)
  - Altered state of consciousness [Unknown]
  - Depressed level of consciousness [Recovering/Resolving]
  - Loss of consciousness [Recovering/Resolving]
  - Eye movement disorder [Unknown]
  - Foaming at mouth [Unknown]
  - Fall [Unknown]
  - Tonic convulsion [Recovered/Resolved]
  - Convulsion [Recovered/Resolved]
  - Red blood cell count decreased [Unknown]
  - Haematocrit decreased [Unknown]
  - Heart rate increased [Unknown]
  - Neutrophil count increased [Unknown]
